FAERS Safety Report 5789394-2 (Version None)
Quarter: 2008Q2

REPORT INFORMATION
  Report Type: 
  Country: None (occurrence: None)
  Receive Date: 20080626
  Receipt Date: 20080619
  Transmission Date: 20081010
  Serious: Yes (Hospitalization)
  Sender: FDA-Public Use
  Company Number: CA-ROCHE-570413

PATIENT
  Sex: Male

DRUGS (14)
  1. CAPECITABINE [Suspect]
     Dosage: LAST DOSE PRIOR TO SAE WAS 11 MAY 2008.
     Route: 048
     Dates: start: 20080225
  2. BEVACIZUMAB [Suspect]
     Route: 042
     Dates: start: 20080225
  3. VASOTEC [Concomitant]
     Dates: start: 20071214
  4. LIPITOR [Concomitant]
     Dates: start: 20060801
  5. ALLOPURINOL [Concomitant]
     Dates: start: 19980101
  6. SYMBICORT [Concomitant]
     Dates: start: 20060201
  7. SYMBICORT [Concomitant]
     Dates: start: 20060201
  8. IMODIUM [Concomitant]
     Dates: start: 20080305
  9. TYLENOL EXTRA-STRENGTH [Concomitant]
     Dates: start: 20080411
  10. DILUADID [Concomitant]
     Dates: start: 20080516
  11. LOMOTIL [Concomitant]
     Dates: start: 20080517
  12. LOMOTIL [Concomitant]
     Dates: start: 20080517
  13. LOMOTIL [Concomitant]
     Dates: start: 20080517
  14. PROCHLORPERAZINE [Concomitant]
     Dates: start: 20080303

REACTIONS (1)
  - INTESTINAL OBSTRUCTION [None]
